FAERS Safety Report 6506832-8 (Version None)
Quarter: 2009Q4

REPORT INFORMATION
  Report Type: 
  Country: None (occurrence: None)
  Receive Date: 20091216
  Receipt Date: 20091201
  Transmission Date: 20100525
  Serious: Yes (Death)
  Sender: FDA-Public Use
  Company Number: 112

PATIENT
  Age: 55 Year
  Sex: Male

DRUGS (1)
  1. FAZACLO ODT [Suspect]
     Indication: SCHIZOPHRENIA
     Dosage: 150 MG PO DAILY
     Route: 048
     Dates: start: 20070309, end: 20070323

REACTIONS (1)
  - HEPATITIS VIRAL [None]
